FAERS Safety Report 4712885-X (Version None)
Quarter: 2005Q3

REPORT INFORMATION
  Report Type: 
  Country: None (occurrence: None)
  Receive Date: 20050712
  Receipt Date: 20050712
  Transmission Date: 20060218
  Serious: Yes (Hospitalization)
  Sender: FDA-Public Use
  Company Number: None

PATIENT
  Age: 48 Year
  Sex: Female

DRUGS (2)
  1. PROPOFOL [Suspect]
     Indication: GASTROINTESTINAL DISORDER
     Dosage: INTRAVENOU
     Route: 042
     Dates: start: 20050407, end: 20050407
  2. PROPOFOL [Suspect]
     Indication: SEDATION
     Dosage: INTRAVENOU
     Route: 042
     Dates: start: 20050407, end: 20050407

REACTIONS (3)
  - COUGH [None]
  - SECRETION DISCHARGE [None]
  - WHEEZING [None]
